FAERS Safety Report 20273480 (Version 1)
Quarter: 2022Q1

REPORT INFORMATION
  Report Type: Spontaneous
  Country: IT (occurrence: IT)
  Receive Date: 20220102
  Receipt Date: 20220102
  Transmission Date: 20220423
  Serious: Yes (Other)
  Sender: FDA-Public Use
  Company Number: IT-JNJFOC-20211259408

PATIENT
  Age: 15 Year
  Sex: Female

DRUGS (1)
  1. RISPERDAL [Suspect]
     Active Substance: RISPERIDONE
     Indication: Product used for unknown indication
     Dosage: 10 TABLETS
     Route: 048

REACTIONS (2)
  - Intentional self-injury [Unknown]
  - Intentional overdose [Unknown]
